FAERS Safety Report 20802461 (Version 1)
Quarter: 2022Q2

REPORT INFORMATION
  Report Type: Spontaneous
  Country: US (occurrence: None)
  Receive Date: 20220507
  Receipt Date: 20220507
  Transmission Date: 20220721
  Serious: Yes (Other)
  Sender: FDA-Public Use
  Company Number: None

PATIENT
  Age: 72 Year
  Sex: Female
  Weight: 73.35 kg

DRUGS (5)
  1. CLOPIDOGREL [Suspect]
     Active Substance: CLOPIDOGREL BISULFATE
     Indication: Antiplatelet therapy
     Dates: start: 20211012, end: 20220501
  2. ASPIRIN [Concomitant]
     Active Substance: ASPIRIN
  3. ADVIL [Concomitant]
     Active Substance: IBUPROFEN
  4. VITAMIN D [Concomitant]
     Active Substance: VITAMIN D NOS
  5. DIETARY SUPPLEMENT\GRAPE SEED EXTRACT [Concomitant]
     Active Substance: DIETARY SUPPLEMENT\GRAPE SEED EXTRACT

REACTIONS (3)
  - Migraine [None]
  - Ankylosing spondylitis [None]
  - Hypoaesthesia [None]

NARRATIVE: CASE EVENT DATE: 20220504
